FAERS Safety Report 12939874 (Version 1)
Quarter: 2016Q4

REPORT INFORMATION
  Report Type: Spontaneous
  Country: US (occurrence: US)
  Receive Date: 20161115
  Receipt Date: 20161115
  Transmission Date: 20170207
  Serious: Yes (Death)
  Sender: FDA-Public Use
  Company Number: US-PFIZER INC-2016520557

PATIENT
  Age: 23 Year
  Sex: Female

DRUGS (18)
  1. AMPHOTERICIN B LIPID COMPLEX [Suspect]
     Active Substance: AMPHOTERICIN B
     Dosage: 5 MG/KG, DAILY
  2. LIPOSOMAL AMPHOTERICIN [Concomitant]
     Active Substance: AMPHOTERICIN B
     Dosage: 5 MG/KG, (23-30, 31-45, 46-60, 61-65 DAYS)
  3. AMPHOTERICIN B LIPID COMPLEX [Suspect]
     Active Substance: AMPHOTERICIN B
     Dosage: 5 MG/KG, 3X/WK
     Route: 042
  4. LIPOSOMAL AMPHOTERICIN [Concomitant]
     Active Substance: AMPHOTERICIN B
     Dosage: 7 MG/KG, M,W,F (15-22 DAYS);
  5. CEFTRIAXONE SODIUM. [Suspect]
     Active Substance: CEFTRIAXONE SODIUM
     Indication: LISTERIOSIS
     Dosage: 2 G, 2X/DAY (80-83 DAYS)
  6. LIPOSOMAL AMPHOTERICIN [Concomitant]
     Active Substance: AMPHOTERICIN B
     Indication: CRYPTOCOCCOSIS
     Dosage: 7 MG/KG (5-14 DAYS)
     Route: 042
  7. LIPOSOMAL AMPHOTERICIN [Concomitant]
     Active Substance: AMPHOTERICIN B
     Dosage: 7 MG/KG, M,W,F (76-79 DAYS)
  8. DEXAMETHASONE. [Concomitant]
     Active Substance: DEXAMETHASONE
     Dosage: 2 MG, 2X/DAY (76-79 DAYS)
  9. AMPICILLIN SODIUM. [Suspect]
     Active Substance: AMPICILLIN SODIUM
     Indication: LISTERIOSIS
     Dosage: 2 G, Q4H (80-83 DAYS);
  10. FLUCONAZOLE. [Suspect]
     Active Substance: FLUCONAZOLE
     Dosage: 600 MG, 2X/DAY (23-30, 31-45, 46-60, 61-75, 76-83 DAYS)
  11. AMPHOTERICIN B LIPID COMPLEX [Suspect]
     Active Substance: AMPHOTERICIN B
     Indication: CRYPTOCOCCOSIS
     Dosage: 1 MG/KG, DAILY (1-4 DAYS)
     Route: 042
  12. FLUCYTOSINE. [Concomitant]
     Active Substance: FLUCYTOSINE
     Indication: CRYPTOCOCCOSIS
     Dosage: 2 G, 4X/DAY (1-14 DAYS)
     Route: 042
  13. FLUCYTOSINE. [Concomitant]
     Active Substance: FLUCYTOSINE
     Dosage: 3 G, 4X/DAY (23-30, 31-45 DAYS)
     Route: 042
  14. DEXAMETHASONE. [Concomitant]
     Active Substance: DEXAMETHASONE
     Indication: REDUCTION OF INCREASED INTRACRANIAL PRESSURE
     Dosage: 2 MG, 4X/DAY (46-60 DAYS)
     Route: 048
  15. SULFAMETHOXAZOLE/TRIMETHOPRIM [Suspect]
     Active Substance: SULFAMETHOXAZOLE\TRIMETHOPRIM
     Indication: LISTERIOSIS
     Dosage: 2 DF, 3X/DAY (320-1,600 MG (2 DOUBLE-STRENGTH TABLETS) (80-83 DAYS)
  16. FLUCONAZOLE. [Suspect]
     Active Substance: FLUCONAZOLE
     Indication: CRYPTOCOCCOSIS
     Dosage: 400 MG, 2X/DAY (15-22 DAYS)
     Route: 048
  17. AMPHOTERICIN B LIPID COMPLEX [Suspect]
     Active Substance: AMPHOTERICIN B
     Dosage: UNK, (3X/WK)
     Route: 042
  18. DEXAMETHASONE. [Concomitant]
     Active Substance: DEXAMETHASONE
     Indication: IMMUNE RECONSTITUTION INFLAMMATORY SYNDROME
     Dosage: 2 MG, 3X/DAY (61-75 DAYS)

REACTIONS (6)
  - Drug ineffective [Fatal]
  - Pyrexia [None]
  - Coma [None]
  - Status epilepticus [None]
  - Intracranial pressure increased [None]
  - Immune reconstitution inflammatory syndrome [None]
